FAERS Safety Report 5323318-7 (Version None)
Quarter: 2007Q2

REPORT INFORMATION
  Report Type: 
  Country: None (occurrence: None)
  Receive Date: 20070221
  Receipt Date: 20060928
  Transmission Date: 20071010
  Serious: Yes (Hospitalization)
  Sender: FDA-Public Use
  Company Number: BDI-008697

PATIENT
  Age: 77 Year
  Sex: Female

DRUGS (2)
  1. ISOVUE-370 [Suspect]
     Indication: ANGINA UNSTABLE
     Dosage: 50 ML ONCE IC
     Dates: start: 20060928, end: 20060928
  2. ISOVUE-370 [Suspect]
     Indication: CATHETERISATION CARDIAC
     Dosage: 50 ML ONCE IC
     Dates: start: 20060928, end: 20060928

REACTIONS (2)
  - HERPES ZOSTER [None]
  - HYPERSENSITIVITY [None]
